FAERS Safety Report 8170180-3 (Version None)
Quarter: 2012Q1

REPORT INFORMATION
  Report Type: 
  Country: None (occurrence: None)
  Receive Date: 20120228
  Receipt Date: 20120219
  Transmission Date: 20120608
  Serious: Yes (Other)
  Sender: FDA-Public Use
  Company Number: PHHY2012DE014805

PATIENT

DRUGS (2)
  1. RASILEZ [Suspect]
  2. CANDESARTAN CILEXETIL [Concomitant]
     Dosage: 1 DF, BID

REACTIONS (5)
  - MUSCULAR WEAKNESS [None]
  - NOCTURIA [None]
  - HYPONATRAEMIA [None]
  - FATIGUE [None]
  - GENERAL PHYSICAL HEALTH DETERIORATION [None]
